FAERS Safety Report 16656454 (Version 1)
Quarter: 2019Q3

REPORT INFORMATION
  Report Type: Spontaneous
  Country: GR (occurrence: GR)
  Receive Date: 20190801
  Receipt Date: 20190801
  Transmission Date: 20191004
  Serious: Yes (Hospitalization)
  Sender: FDA-Public Use
  Company Number: GR-JNJFOC-20190739047

PATIENT
  Age: 75 Year
  Sex: Male
  Weight: 75 kg

DRUGS (4)
  1. TREBON [Concomitant]
     Indication: PRODUCTIVE COUGH
     Route: 048
     Dates: start: 20040910, end: 20040920
  2. EFFEXOR [Concomitant]
     Active Substance: VENLAFAXINE HYDROCHLORIDE
     Indication: DEPRESSION
     Route: 048
     Dates: start: 20040810
  3. REMICADE [Suspect]
     Active Substance: INFLIXIMAB
     Indication: ANKYLOSING SPONDYLITIS
     Route: 042
     Dates: start: 20040429, end: 20040603
  4. RIFINAH [Concomitant]
     Active Substance: ISONIAZID\RIFAMPIN
     Indication: PRODUCT USED FOR UNKNOWN INDICATION
     Route: 048
     Dates: start: 20040708, end: 20041210

REACTIONS (2)
  - Interstitial lung disease [Recovered/Resolved with Sequelae]
  - Cutaneous lupus erythematosus [Recovered/Resolved with Sequelae]

NARRATIVE: CASE EVENT DATE: 20040908
